FAERS Safety Report 9757484 (Version 2)
Quarter: 2013Q4

REPORT INFORMATION
  Report Type: Spontaneous
  Country: DE (occurrence: DE)
  Receive Date: 20131215
  Receipt Date: 20131215
  Transmission Date: 20140711
  Serious: Yes (Hospitalization)
  Sender: FDA-Public Use
  Company Number: DE-MERCK-1310DEU011631

PATIENT
  Age: 61 Year
  Sex: Male
  Weight: 92.8 kg

DRUGS (6)
  1. VICTRELIS [Suspect]
     Indication: HEPATITIS C
     Dosage: 800 MG, TID
     Route: 048
     Dates: start: 20130817, end: 20131005
  2. PEGINTRON [Suspect]
     Indication: HEPATITIS C
     Dosage: 150MCG ONCE WEEKLY
     Route: 058
     Dates: start: 20130719, end: 2013
  3. PEGINTRON [Suspect]
     Dosage: 60 MICROGRAM, QW
     Route: 058
     Dates: start: 2013, end: 20131005
  4. REBETOL [Suspect]
     Indication: HEPATITIS C
     Dosage: 1200MG DAILY
     Route: 048
     Dates: start: 20130719, end: 2013
  5. REBETOL [Suspect]
     Dosage: UNK
     Route: 048
     Dates: start: 2013, end: 20131005
  6. CANDESARTAN [Concomitant]
     Indication: HYPERTENSION
     Dosage: UNK
     Route: 048
     Dates: start: 201303

REACTIONS (6)
  - Leukopenia [Recovered/Resolved]
  - Bone marrow toxicity [Recovered/Resolved]
  - Anaemia [Recovered/Resolved]
  - Fatigue [Recovered/Resolved]
  - Thrombocytopenia [Recovered/Resolved]
  - Myelofibrosis [Unknown]
